FAERS Safety Report 22860156 (Version 7)
Quarter: 2025Q1

REPORT INFORMATION
  Report Type: Spontaneous
  Country: US (occurrence: US)
  Receive Date: 20230824
  Receipt Date: 20250211
  Transmission Date: 20250409
  Serious: Yes (Hospitalization, Other)
  Sender: SANOFI AVENTIS
  Company Number: US-SA-SAC20230821000286

PATIENT
  Age: 6 Year
  Sex: Male

DRUGS (4)
  1. ALPROLIX [Suspect]
     Active Substance: EFTRENONACOG ALFA
     Indication: Haemorrhage
     Route: 065
  2. ALPROLIX [Suspect]
     Active Substance: EFTRENONACOG ALFA
     Indication: Haemorrhage
     Route: 065
  3. ALPROLIX [Suspect]
     Active Substance: EFTRENONACOG ALFA
     Route: 042
     Dates: start: 20240709
  4. ALPROLIX [Suspect]
     Active Substance: EFTRENONACOG ALFA
     Route: 042
     Dates: start: 20240709

REACTIONS (16)
  - Upper respiratory tract infection [Unknown]
  - Bronchitis [Unknown]
  - Hypoxia [Unknown]
  - Hypothermia [Unknown]
  - Fall [Unknown]
  - Head injury [Unknown]
  - Head injury [Unknown]
  - Swelling [Unknown]
  - Contusion [Unknown]
  - Injury [Unknown]
  - Gingival bleeding [Unknown]
  - Gingival swelling [Unknown]
  - Palatal swelling [Unknown]
  - Animal bite [Unknown]
  - Tooth disorder [Unknown]
  - Tooth extraction [Unknown]

NARRATIVE: CASE EVENT DATE: 20230816
